FAERS Safety Report 10192719 (Version 4)
Quarter: 2014Q3

REPORT INFORMATION
  Report Type: Report from Study
  Country: JP (occurrence: JP)
  Receive Date: 20140523
  Receipt Date: 20140912
  Transmission Date: 20150326
  Serious: Yes (Hospitalization)
  Sender: FDA-Public Use
  Company Number: JP-ABBVIE-14P-087-1238351-00

PATIENT
  Age: 62 Year
  Sex: Male
  Weight: 59.1 kg

DRUGS (10)
  1. DAIKENCHUTO [Concomitant]
     Active Substance: HERBALS
     Indication: BEHCET^S SYNDROME
     Route: 048
  2. DIMETICONE [Concomitant]
     Active Substance: DIMETHICONE
  3. HUMIRA [Suspect]
     Active Substance: ADALIMUMAB
     Route: 058
     Dates: start: 20130527, end: 20130527
  4. CLOSTRIDIUM BUTYRICUM [Concomitant]
     Active Substance: CLOSTRIDIUM BUTYRICUM SPORES STRAIN M-55
     Indication: BEHCET^S SYNDROME
     Route: 048
  5. GLIMEPIRIDE. [Concomitant]
     Active Substance: GLIMEPIRIDE
     Indication: PRODUCT USED FOR UNKNOWN INDICATION
     Dosage: 1-3 MG, BID
     Route: 048
  6. HUMIRA [Suspect]
     Active Substance: ADALIMUMAB
     Indication: BEHCET^S SYNDROME
     Route: 058
     Dates: start: 20110119, end: 20130511
  7. AMLODIPINE BESILATE [Concomitant]
     Active Substance: AMLODIPINE BESYLATE
     Indication: PRODUCT USED FOR UNKNOWN INDICATION
     Route: 048
  8. DIMETICONE [Concomitant]
     Active Substance: DIMETHICONE
     Indication: BEHCET^S SYNDROME
     Route: 048
  9. DIMETICONE [Concomitant]
     Active Substance: DIMETHICONE
  10. SCOPOLAMINE BUTYLBROMIDE [Concomitant]
     Active Substance: SCOPOLAMINE
     Indication: BEHCET^S SYNDROME
     Route: 048

REACTIONS (1)
  - Ileus [Recovered/Resolved]

NARRATIVE: CASE EVENT DATE: 20130610
